FAERS Safety Report 4668568-8 (Version None)
Quarter: 2005Q2

REPORT INFORMATION
  Report Type: 
  Country: None (occurrence: None)
  Receive Date: 20050519
  Receipt Date: 20050511
  Transmission Date: 20051028
  Serious: Yes (Hospitalization)
  Sender: FDA-Public Use
  Company Number: 2005073292

PATIENT
  Age: 71 Year
  Sex: Female
  Weight: 95.2554 kg

DRUGS (8)
  1. BEXTRA [Suspect]
     Indication: ARTHRITIS
     Dosage: 10 MG (10 MG, 1 IN 1 D), ORAL
     Route: 048
     Dates: start: 20040101, end: 20041101
  2. CELEBREX [Suspect]
     Indication: ARTHRITIS
     Dosage: (1 IN 1 D), ORAL
     Route: 048
     Dates: start: 20040101, end: 20040101
  3. LIPITOR [Suspect]
     Indication: BLOOD CHOLESTEROL INCREASED
  4. LANSOPRAZOLE [Suspect]
     Indication: GASTROOESOPHAGEAL REFLUX DISEASE
  5. DESLORATADINE (DESLORATADINE) [Suspect]
     Indication: MULTIPLE ALLERGIES
  6. LISINOPRIL [Concomitant]
  7. DILTIAZEM HYDROCHLORIDE [Concomitant]
  8. ROFECOXIB [Concomitant]

REACTIONS (8)
  - ABDOMINAL PAIN UPPER [None]
  - ANGIOPATHY [None]
  - BALANCE DISORDER [None]
  - BLOOD POTASSIUM INCREASED [None]
  - DIZZINESS [None]
  - NAUSEA [None]
  - RENAL DISORDER [None]
  - RENAL IMPAIRMENT [None]
